FAERS Safety Report 25682736 (Version 1)
Quarter: 2025Q3

REPORT INFORMATION
  Report Type: Spontaneous
  Country: EU (occurrence: EU)
  Receive Date: 20250814
  Receipt Date: 20250814
  Transmission Date: 20251020
  Serious: Yes (Hospitalization)
  Sender: PFIZER
  Company Number: None

PATIENT
  Age: 55 Year
  Sex: Female
  Weight: 82.4 kg

DRUGS (6)
  1. EPIRUBICIN HYDROCHLORIDE [Suspect]
     Active Substance: EPIRUBICIN HYDROCHLORIDE
     Indication: Breast cancer
     Route: 042
     Dates: start: 20250328, end: 20250530
  2. KEYTRUDA [Suspect]
     Active Substance: PEMBROLIZUMAB
     Indication: Breast cancer
     Route: 042
     Dates: start: 20241220, end: 20250530
  3. CYCLOPHOSPHAMIDE [Suspect]
     Active Substance: CYCLOPHOSPHAMIDE
     Indication: Breast cancer
     Route: 042
     Dates: start: 20250328, end: 20250530
  4. METFORMIN PAMOATE [Concomitant]
     Active Substance: METFORMIN PAMOATE
  5. GABAPENTIN [Concomitant]
     Active Substance: GABAPENTIN
  6. PHLOROGLUCINOL [Concomitant]
     Active Substance: PHLOROGLUCINOL

REACTIONS (2)
  - Secondary adrenocortical insufficiency [Recovered/Resolved with Sequelae]
  - Febrile neutropenia [Recovered/Resolved]

NARRATIVE: CASE EVENT DATE: 20250606
